FAERS Safety Report 15852955 (Version 1)
Quarter: 2019Q1

REPORT INFORMATION
  Report Type: Spontaneous
  Country: US (occurrence: US)
  Receive Date: 20190119
  Receipt Date: 20190119
  Transmission Date: 20190417
  Serious: Yes (Death, Life-Threatening, Other)
  Sender: FDA-Public Use
  Company Number: None

PATIENT
  Age: 72 Year
  Sex: Male
  Weight: 58 kg

DRUGS (1)
  1. NEXAVAR [Suspect]
     Active Substance: SORAFENIB
     Indication: HEPATOCELLULAR CARCINOMA
     Dosage: ?          QUANTITY:1 TABLET(S);?
     Route: 048

REACTIONS (9)
  - Condition aggravated [None]
  - Rash [None]
  - Jaundice [None]
  - Vomiting [None]
  - Blood pressure decreased [None]
  - Somnolence [None]
  - Dermatitis exfoliative [None]
  - Neoplasm progression [None]
  - Anal incontinence [None]

NARRATIVE: CASE EVENT DATE: 20181122
